FAERS Safety Report 4812481-X (Version None)
Quarter: 2005Q4

REPORT INFORMATION
  Report Type: 
  Country: None (occurrence: None)
  Receive Date: 20051028
  Receipt Date: 20050204
  Transmission Date: 20060501
  Serious: No
  Sender: FDA-Public Use
  Company Number: US-GLAXOSMITHKLINE-A0543944A

PATIENT
  Age: 7 Year
  Sex: Female

DRUGS (10)
  1. ADVAIR DISKUS 100/50 [Suspect]
     Indication: ASTHMA
     Dosage: 1PUFF TWICE PER DAY
     Route: 055
  2. PULMICORT [Concomitant]
  3. ORAPRED [Concomitant]
  4. STEROID INJECTION [Concomitant]
  5. SINGULAIR [Concomitant]
  6. ZYRTEC [Concomitant]
  7. NASONEX [Concomitant]
  8. ALBUTEROL [Concomitant]
  9. XOPENEX [Concomitant]
     Route: 065
  10. UNKNOWN MEDICATION [Concomitant]
     Route: 065

REACTIONS (1)
  - COUGH [None]
